FAERS Safety Report 4556102-2 (Version None)
Quarter: 2005Q1

REPORT INFORMATION
  Report Type: 
  Country: None (occurrence: None)
  Receive Date: 20050114
  Receipt Date: 20050107
  Transmission Date: 20050727
  Serious: Yes (Hospitalization, Other)
  Sender: FDA-Public Use
  Company Number: 2004104722

PATIENT
  Age: 61 Year
  Sex: Female
  Weight: 60 kg

DRUGS (2)
  1. LIPITOR [Suspect]
     Indication: HYPERLIPIDAEMIA
     Dosage: 5 MG, UNKNOWN, ORAL
     Route: 048
     Dates: start: 20010101, end: 20041124
  2. RISEDRONATE SODIUM [Concomitant]

REACTIONS (8)
  - ABDOMINAL PAIN UPPER [None]
  - AUTOIMMUNE DISORDER [None]
  - HEPATIC FUNCTION ABNORMAL [None]
  - LIVER FUNCTION TEST ABNORMAL [None]
  - LUPUS-LIKE SYNDROME [None]
  - NASOPHARYNGITIS [None]
  - PERICARDIAL EFFUSION [None]
  - PLEURAL EFFUSION [None]
